FAERS Safety Report 15516280 (Version 1)
Quarter: 2018Q4

REPORT INFORMATION
  Report Type: Spontaneous
  Country: US (occurrence: US)
  Receive Date: 20181017
  Receipt Date: 20181017
  Transmission Date: 20190205
  Serious: Yes (Hospitalization, Other)
  Sender: FDA-Public Use
  Company Number: US-APOTEX-2018AP022650

PATIENT
  Age: 16 Year
  Sex: Male

DRUGS (10)
  1. ARIPIPRAZOLE. [Suspect]
     Active Substance: ARIPIPRAZOLE
     Indication: DEPRESSION
     Dosage: 5 MG, Q.H.S.
     Route: 048
  2. ARIPIPRAZOLE. [Suspect]
     Active Substance: ARIPIPRAZOLE
     Indication: GENDER DYSPHORIA
     Dosage: 10 MG, UNK
     Route: 048
  3. LITHIUM. [Concomitant]
     Active Substance: LITHIUM
     Indication: GENDER DYSPHORIA
  4. SERTRALINE [Suspect]
     Active Substance: SERTRALINE HYDROCHLORIDE
     Indication: DEPRESSION
     Dosage: 50 MG, DAILY
     Route: 048
  5. ARIPIPRAZOLE. [Suspect]
     Active Substance: ARIPIPRAZOLE
     Indication: INTENTIONAL SELF-INJURY
     Dosage: 15 MG, UNK
     Route: 048
  6. SERTRALINE [Suspect]
     Active Substance: SERTRALINE HYDROCHLORIDE
     Indication: GENDER DYSPHORIA
     Dosage: 100 MG, Q.AM
     Route: 048
  7. LITHIUM. [Concomitant]
     Active Substance: LITHIUM
     Indication: INTENTIONAL SELF-INJURY
  8. SERTRALINE [Suspect]
     Active Substance: SERTRALINE HYDROCHLORIDE
     Indication: INTENTIONAL SELF-INJURY
     Dosage: 200 MG, EVERY MORNING
     Route: 048
  9. ALPRAZOLAM. [Suspect]
     Active Substance: ALPRAZOLAM
     Indication: SUICIDE ATTEMPT
     Dosage: FOUR TABS TOTAL
     Route: 065
  10. LITHIUM. [Concomitant]
     Active Substance: LITHIUM
     Indication: DEPRESSION
     Dosage: 450 MG, EVERY MORNING
     Route: 048

REACTIONS (10)
  - Extrapyramidal disorder [Recovered/Resolved]
  - Muscle contractions involuntary [Recovered/Resolved]
  - Tongue disorder [Recovered/Resolved]
  - Loss of consciousness [Unknown]
  - Diplopia [Recovered/Resolved]
  - Vision blurred [Recovered/Resolved]
  - Drug interaction [Unknown]
  - Extra dose administered [Unknown]
  - Drug ineffective [Unknown]
  - Prescription drug used without a prescription [Unknown]
